FAERS Safety Report 9212833 (Version 1)
Quarter: 2013Q1

REPORT INFORMATION
  Report Type: Spontaneous
  Country: US (occurrence: None)
  Receive Date: 20120820
  Receipt Date: 20120820
  Transmission Date: 20140127
  Serious: No
  Sender: FDA-Public Use
  Company Number: 1000031412

PATIENT
  Age: 78 Year
  Sex: Female

DRUGS (4)
  1. VIIBRYD [Suspect]
     Indication: DEPRESSION
     Dosage: 10 MG 1 IN 1 D
     Route: 048
     Dates: start: 201205, end: 2012
  2. KLONOPIN [Concomitant]
  3. RITALIN (METHYLPHENIDATE HYDROCHLORIDE)(METHYLPHENIDATE HYDROCHLORIDE) [Concomitant]
  4. HYDROCHLOROTHIAZIDE (HYDROCHLOROTHIAZIDE) (HYDROCHLOROTHIAZIDE) [Concomitant]

REACTIONS (9)
  - Anxiety [None]
  - Mental impairment [None]
  - Depression [None]
  - Crying [None]
  - Heart rate increased [None]
  - Hyperhidrosis [None]
  - Nausea [None]
  - Musculoskeletal stiffness [None]
  - Blood sodium decreased [None]
